FAERS Safety Report 10146876 (Version 1)
Quarter: 2014Q2

REPORT INFORMATION
  Report Type: Spontaneous
  Country: IT (occurrence: IT)
  Receive Date: 20140501
  Receipt Date: 20140501
  Transmission Date: 20141212
  Serious: Yes (Other)
  Sender: FDA-Public Use
  Company Number: IT-ABBVIE-14P-083-1232264-00

PATIENT
  Age: 27 Year
  Sex: Male

DRUGS (1)
  1. KLACID [Suspect]
     Indication: INJURY
     Route: 048
     Dates: start: 20140326, end: 20140327

REACTIONS (4)
  - Cholelithiasis [Unknown]
  - Abdominal pain upper [Unknown]
  - Jaundice [Unknown]
  - Decreased appetite [Unknown]
